FAERS Safety Report 23197788 (Version 1)
Quarter: 2023Q4

REPORT INFORMATION
  Report Type: Spontaneous
  Country: NO (occurrence: None)
  Receive Date: 20231117
  Receipt Date: 20231117
  Transmission Date: 20240110
  Serious: Yes (Life-Threatening, Hospitalization)
  Sender: FDA-Public Use
  Company Number: 2023A258957

PATIENT
  Age: 84 Year
  Sex: Female

DRUGS (6)
  1. DAPAGLIFLOZIN [Suspect]
     Active Substance: DAPAGLIFLOZIN
     Indication: Diabetes mellitus
     Dosage: 1 GANG DAGLIG
     Route: 048
     Dates: start: 20211101, end: 20231018
  2. METFORMIN HYDROCHLORIDE\VILDAGLIPTIN [Suspect]
     Active Substance: METFORMIN HYDROCHLORIDE\VILDAGLIPTIN
     Indication: Diabetes mellitus
     Dosage: 1 TABLETT MORGEN OG KVELD CONTINUED USE OF MEDICINAL PRODUCT
     Route: 048
     Dates: start: 20211031
  3. SIMVASTATIN [Concomitant]
     Active Substance: SIMVASTATIN
     Dosage: 1X1 CONTINUED USE OF MEDICINAL PRODUCT
  4. ASPIRIN [Concomitant]
     Active Substance: ASPIRIN
     Indication: Thrombosis prophylaxis
     Dosage: 1 TABLETT MORGEN
     Dates: start: 20211031, end: 20231019
  5. ACETAMINOPHEN [Concomitant]
     Active Substance: ACETAMINOPHEN
     Dosage: VED BEHOV CONTINUED USE OF MEDICINAL PRODUCT
  6. METOPROLOL [Concomitant]
     Active Substance: METOPROLOL
     Indication: Hypertrophic cardiomyopathy
     Dosage: 1 TABLETT MORGEN CONTINUED USE OF MEDICINAL PRODUCT

REACTIONS (2)
  - Pancreatitis acute [Recovering/Resolving]
  - Ketoacidosis [Recovering/Resolving]

NARRATIVE: CASE EVENT DATE: 20231021
